FAERS Safety Report 19107120 (Version 1)
Quarter: 2021Q2

REPORT INFORMATION
  Report Type: Spontaneous
  Country: US (occurrence: US)
  Receive Date: 20210407
  Receipt Date: 20210407
  Transmission Date: 20210717
  Serious: No
  Sender: FDA-Public Use
  Company Number: None

PATIENT
  Age: 51 Year
  Sex: Female

DRUGS (1)
  1. AMPHOTERICIN B VIAL 50MG [Suspect]
     Active Substance: AMPHOTERICIN B
     Dosage: ?          OTHER FREQUENCY:OTHER;?
     Route: 055
     Dates: start: 202101

REACTIONS (1)
  - Off label use [None]

NARRATIVE: CASE EVENT DATE: 20210407
